FAERS Safety Report 6379953-0 (Version None)
Quarter: 2009Q3

REPORT INFORMATION
  Report Type: 
  Country: None (occurrence: None)
  Receive Date: 20090928
  Receipt Date: 20090916
  Transmission Date: 20100115
  Serious: Yes (Other)
  Sender: FDA-Public Use
  Company Number: US-WYE-H11027909

PATIENT
  Sex: Female
  Weight: 71.28 kg

DRUGS (13)
  1. RELISTOR [Suspect]
     Indication: CONSTIPATION
     Dosage: UNKNOWN
     Route: 058
     Dates: start: 20090821, end: 20090821
  2. RELISTOR [Suspect]
     Dosage: UNKNOWN
     Route: 058
     Dates: start: 20090828, end: 20090828
  3. SYNTHROID [Concomitant]
     Dosage: UNSPECIFIED
     Route: 065
  4. VITAMIN B-12 [Concomitant]
     Dosage: UNSPECIFIED DOSAGE,  MONTHLY INJECTIONS
     Route: 065
  5. XYLOCAINE [Concomitant]
     Dosage: UNSPECIFIED
     Route: 065
  6. TOPAMAX [Concomitant]
     Dosage: UNSPECIFIED
     Route: 065
  7. LASIX [Concomitant]
     Dosage: UNSPECIFIED
     Route: 065
  8. LACTULOSE [Concomitant]
     Dosage: UNSPECIFIED
     Route: 065
  9. PERCOCET [Concomitant]
     Route: 065
  10. METHADONE HYDROCHLORIDE [Concomitant]
     Dosage: UNSPECIFIED
     Route: 065
  11. CLONAZEPAM [Concomitant]
     Dosage: UNSPECIFIED
     Route: 065
  12. LIPOFENE [Concomitant]
     Dosage: UNSPECIFIED
     Route: 065
  13. ASPIRIN [Concomitant]
     Dosage: UNSPECIFIED
     Route: 065

REACTIONS (2)
  - DIARRHOEA [None]
  - WEIGHT DECREASED [None]
